FAERS Safety Report 8286316-X (Version None)
Quarter: 2012Q2

REPORT INFORMATION
  Report Type: 
  Country: None (occurrence: None)
  Receive Date: 20120411
  Receipt Date: 20120411
  Transmission Date: 20120825
  Serious: Yes (Death)
  Sender: FDA-Public Use
  Company Number: None

PATIENT
  Age: 17 Year
  Sex: Female
  Weight: 54.4316 kg

DRUGS (1)
  1. ROXICET [Suspect]

REACTIONS (3)
  - FALL [None]
  - INTENTIONAL SELF-INJURY [None]
  - PARANOIA [None]
